FAERS Safety Report 13782204 (Version 1)
Quarter: 2017Q3

REPORT INFORMATION
  Report Type: Spontaneous
  Country: US (occurrence: US)
  Receive Date: 20170724
  Receipt Date: 20170724
  Transmission Date: 20171127
  Serious: Yes (Hospitalization)
  Sender: FDA-Public Use
  Company Number: None

PATIENT
  Age: 47 Year
  Sex: Female
  Weight: 76.7 kg

DRUGS (1)
  1. NIVOLUMAB [Suspect]
     Active Substance: NIVOLUMAB
     Indication: GLIOBLASTOMA
     Dosage: ?          OTHER DOSE:MG;OTHER FREQUENCY:EVERY 2 WEEKS;?
     Route: 042
     Dates: start: 20170327, end: 20170626

REACTIONS (4)
  - Ataxia [None]
  - Confusional state [None]
  - Asthenia [None]
  - Brain oedema [None]

NARRATIVE: CASE EVENT DATE: 20170712
